FAERS Safety Report 5335124-8 (Version None)
Quarter: 2007Q2

REPORT INFORMATION
  Report Type: 
  Country: None (occurrence: None)
  Receive Date: 20070525
  Receipt Date: 20070518
  Transmission Date: 20071010
  Serious: Yes (Other)
  Sender: FDA-Public Use
  Company Number: CH-ABBOTT-06P-151-0335155-00

PATIENT
  Age: 14 Month
  Sex: Male

DRUGS (2)
  1. VALPROIC ACID [Suspect]
     Indication: EPILEPSY
  2. VALPROIC ACID [Suspect]
     Indication: COMPLEX PARTIAL SEIZURES

REACTIONS (2)
  - EPISTAXIS [None]
  - SUBDURAL HAEMATOMA [None]
